FAERS Safety Report 18229248 (Version 1)
Quarter: 2020Q3

REPORT INFORMATION
  Report Type: Spontaneous
  Country: FR (occurrence: FR)
  Receive Date: 20200903
  Receipt Date: 20200903
  Transmission Date: 20201103
  Serious: Yes (Life-Threatening, Hospitalization)
  Sender: FDA-Public Use
  Company Number: FR-TEVA-2020-FR-1822227

PATIENT
  Age: 68 Year
  Sex: Female

DRUGS (11)
  1. CANDESARTAN CILEXETIL. [Concomitant]
     Active Substance: CANDESARTAN CILEXETIL
     Dosage: 16 MG
     Route: 048
  2. LIPANTHYL 160 MG, COMPRIME PELLICULE [Concomitant]
     Active Substance: FENOFIBRATE
     Dosage: 1 DOSAGE FORM
     Route: 048
  3. PARIET 20 MG, COMPRIME GASTRO?RESISTANT [Concomitant]
     Active Substance: RABEPRAZOLE SODIUM
     Dosage: 1 DOSAGE FORM
     Route: 048
  4. TOPALGIC [Concomitant]
     Route: 048
  5. HYDROCHLOROTHIAZIDE. [Concomitant]
     Active Substance: HYDROCHLOROTHIAZIDE
     Dosage: 12.5 MG
     Route: 048
  6. PAROEX [Concomitant]
     Active Substance: CHLORHEXIDINE GLUCONATE
     Route: 002
  7. ARTELAC 1,6 MG/0,5 ML, COLLYRE EN RECIPIENT UNIDOSE [Concomitant]
     Dosage: IF NECESSARY
     Route: 047
  8. VESICARE [Concomitant]
     Active Substance: SOLIFENACIN SUCCINATE
     Dosage: 1 DOSAGE FORM
     Route: 048
  9. HERCEPTIN [Suspect]
     Active Substance: TRASTUZUMAB
     Indication: BREAST CANCER
     Dosage: UNSPECIFIED
     Route: 042
     Dates: start: 2012, end: 2017
  10. EPIRUBICINE [Suspect]
     Active Substance: EPIRUBICIN
     Indication: BREAST CANCER
     Dosage: UNSPECIFIED
     Route: 042
     Dates: start: 2012
  11. PARACETAMOL [Concomitant]
     Active Substance: ACETAMINOPHEN
     Dosage: IF NECESSARY, 3 GRAM
     Route: 048

REACTIONS (3)
  - Cardio-respiratory arrest [Recovered/Resolved with Sequelae]
  - Cardiac failure [Recovered/Resolved with Sequelae]
  - Cardiomyopathy [Recovered/Resolved with Sequelae]

NARRATIVE: CASE EVENT DATE: 20200119
